FAERS Safety Report 5867097-3 (Version None)
Quarter: 2008Q3

REPORT INFORMATION
  Report Type: 
  Country: None (occurrence: None)
  Receive Date: 20080902
  Receipt Date: 20080827
  Transmission Date: 20090109
  Serious: Yes (Life-Threatening, Hospitalization, Other)
  Sender: FDA-Public Use
  Company Number: PHHY2008CA19352

PATIENT
  Sex: Male

DRUGS (5)
  1. CLOZARIL [Suspect]
     Indication: SCHIZOPHRENIA
     Dosage: 500 MG, QHS
     Route: 048
     Dates: start: 19991122, end: 20080520
  2. RISPERDAL [Concomitant]
     Dosage: 3 MG, QHS
  3. EPIVAL [Concomitant]
     Dosage: 250 MG QAM, 500 MG HS
  4. COLACE [Concomitant]
     Dosage: 100 MG QAM, 200 MG HS
  5. COGENTIN [Concomitant]
     Dosage: 2 MG QAM

REACTIONS (5)
  - DYSPHAGIA [None]
  - GASTROINTESTINAL MOTILITY DISORDER [None]
  - PNEUMONIA ASPIRATION [None]
  - SALIVARY HYPERSECRETION [None]
  - SEPSIS [None]
